FAERS Safety Report 4704703-0 (Version None)
Quarter: 2005Q2

REPORT INFORMATION
  Report Type: 
  Country: None (occurrence: None)
  Receive Date: 20050629
  Receipt Date: 20050614
  Transmission Date: 20051028
  Serious: No
  Sender: FDA-Public Use
  Company Number: B0384405A

PATIENT
  Age: 33 Year
  Sex: Female
  Weight: 63.8665 kg

DRUGS (16)
  1. ZANTAC [Suspect]
     Dosage: 150 MG/TWICE PER DAY/ORAL
     Route: 048
  2. REMIFENTANIL HCL (REMIFENTANIL HCL) [Suspect]
     Dosage: SEE DOSAGE TEXT
  3. METOCLOPAMIDE (METOCLOPRAMIDE) [Concomitant]
     Dosage: 10 MG/SINGLE DOSE
  4. SUCCINYLCHOLINE CHLORIDE [Suspect]
  5. HARTMANN'S SOLUTION (HARTMANN'S SOLUTION) [Suspect]
     Dosage: INTRAVENOUS
     Route: 042
  6. SODIUM CITRATE [Suspect]
     Dosage: 30 ML
  7. ETOMIDATE (ETOMIDATE) [Suspect]
  8. ISOFLURANE+NITR.OX+OXYGEN(ISOFLURANE+BUTR. OX+OGYCEN) [Suspect]
  9. ECURONIUM BROMIDE (VENCURONIUM BROMIDE) [Suspect]
     Dosage: 1 MG /KG
  10. MORPHINE [Concomitant]
  11. GLYCOPYRRONIUM+NEOSTIGMIN [Concomitant]
  12. ACETAMINOPHEN [Concomitant]
  13. DICLOFENAC SODIUM [Concomitant]
  14. OXYTOCIN [Concomitant]
  15. GENTAMICIN SULFATE [Concomitant]
  16. CEFUROXIME [Concomitant]

REACTIONS (5)
  - BRADYCARDIA [None]
  - DRUG EXPOSURE DURING PREGNANCY [None]
  - HYPOTENSION [None]
  - POSTPARTUM HAEMORRHAGE [None]
  - UTERINE ATONY [None]
